FAERS Safety Report 24194829 (Version 2)
Quarter: 2024Q3

REPORT INFORMATION
  Report Type: Spontaneous
  Country: US (occurrence: US)
  Receive Date: 20240809
  Receipt Date: 20240818
  Transmission Date: 20241017
  Serious: Yes (Other)
  Sender: CIPLA
  Company Number: US-MLMSERVICE-20240723-PI140824-00312-1

PATIENT

DRUGS (1)
  1. TESTOSTERONE [Suspect]
     Active Substance: TESTOSTERONE
     Indication: Hypogonadism
     Dosage: 250 MG/ML INJECTION EVERY 7-10 DAYS AGAINST MEDICAL ADVICE
     Route: 058
     Dates: end: 2023

REACTIONS (5)
  - Prostate cancer recurrent [Unknown]
  - Prescription drug used without a prescription [Unknown]
  - Invasive ductal breast carcinoma [Unknown]
  - Prostate cancer metastatic [Unknown]
  - Breast cancer male [Unknown]
